FAERS Safety Report 12398250 (Version 1)
Quarter: 2016Q2

REPORT INFORMATION
  Report Type: Report from Study
  Country: DK (occurrence: DE)
  Receive Date: 20160524
  Receipt Date: 20160524
  Transmission Date: 20160815
  Serious: Yes (Other)
  Sender: FDA-Public Use
  Company Number: DE-FRI-1000084805

PATIENT
  Age: 41 Year
  Sex: Female

DRUGS (11)
  1. MIRTAZAPIN / MIRTAZAPINE [Concomitant]
     Dosage: 3.75 MG
     Route: 048
     Dates: start: 20150127, end: 20150203
  2. MIRTAZAPIN / MIRTAZAPINE [Concomitant]
     Route: 048
     Dates: start: 20150204, end: 20150217
  3. ESCITALOPRAM [Suspect]
     Active Substance: ESCITALOPRAM OXALATE
     Route: 048
     Dates: start: 20150203, end: 20150216
  4. ESCITALOPRAM [Suspect]
     Active Substance: ESCITALOPRAM OXALATE
     Route: 048
     Dates: start: 20150217, end: 20150218
  5. MIRTAZAPIN / MIRTAZAPINE [Concomitant]
     Indication: PRODUCT USED FOR UNKNOWN INDICATION
     Route: 048
     Dates: start: 2014, end: 20150112
  6. MIRTAZAPIN / MIRTAZAPINE [Concomitant]
     Route: 048
     Dates: start: 20150113, end: 20150126
  7. ESCITALOPRAM [Suspect]
     Active Substance: ESCITALOPRAM OXALATE
     Route: 048
     Dates: start: 20150223
  8. ESCITALOPRAM [Suspect]
     Active Substance: ESCITALOPRAM OXALATE
     Route: 048
     Dates: start: 20150219, end: 20150220
  9. MIRTAZAPIN / MIRTAZAPINE [Concomitant]
     Route: 048
     Dates: start: 20150218
  10. ESCITALOPRAM [Suspect]
     Active Substance: ESCITALOPRAM OXALATE
     Indication: PRODUCT USED FOR UNKNOWN INDICATION
     Route: 048
     Dates: start: 2014, end: 20150202
  11. ESCITALOPRAM [Suspect]
     Active Substance: ESCITALOPRAM OXALATE
     Route: 048
     Dates: start: 20150221, end: 20150222

REACTIONS (2)
  - Rash [Recovering/Resolving]
  - Dermatitis allergic [Recovering/Resolving]

NARRATIVE: CASE EVENT DATE: 20150215
